FAERS Safety Report 14681807 (Version 1)
Quarter: 2018Q1

REPORT INFORMATION
  Report Type: Spontaneous
  Country: ZA (occurrence: ZA)
  Receive Date: 20180326
  Receipt Date: 20180326
  Transmission Date: 20180509
  Serious: Yes (Death)
  Sender: FDA-Public Use
  Company Number: ZA-PFIZER INC-2018122999

PATIENT
  Age: 34 Year
  Sex: Male

DRUGS (3)
  1. EPANUTIN [Suspect]
     Active Substance: PHENYTOIN SODIUM
     Dosage: 100 MG, UNK
  2. DOPAQUEL [Suspect]
     Active Substance: QUETIAPINE
     Dosage: 100 MG, UNK
  3. REDILEV [Suspect]
     Active Substance: LEVETIRACETAM
     Dosage: 750 MG, UNK

REACTIONS (1)
  - Death [Fatal]

NARRATIVE: CASE EVENT DATE: 20180315
